FAERS Safety Report 5655583-0 (Version None)
Quarter: 2008Q1

REPORT INFORMATION
  Report Type: 
  Country: None (occurrence: None)
  Receive Date: 20080307
  Receipt Date: 20080227
  Transmission Date: 20080703
  Serious: Yes (Other)
  Sender: FDA-Public Use
  Company Number: CA-JNJFOC-20080300285

PATIENT
  Age: 43 Year
  Sex: Male

DRUGS (1)
  1. EXTRA STRENGTH TYLENOL SINUS DAYTIME [Suspect]
     Indication: ALLERGIC SINUSITIS
     Route: 048

REACTIONS (1)
  - CEREBRAL HAEMORRHAGE [None]
